FAERS Safety Report 5425788-2 (Version None)
Quarter: 2007Q3

REPORT INFORMATION
  Report Type: 
  Country: None (occurrence: None)
  Receive Date: 20070826
  Receipt Date: 20070625
  Transmission Date: 20080115
  Serious: Yes (Hospitalization)
  Sender: FDA-Public Use
  Company Number: MX-ELI_LILLY_AND_COMPANY-MX200706005472

PATIENT

DRUGS (1)
  1. EXENATIDE [Suspect]

REACTIONS (2)
  - LITHOTRIPSY [None]
  - RENAL STONE REMOVAL [None]
